FAERS Safety Report 6768722-5 (Version None)
Quarter: 2010Q2

REPORT INFORMATION
  Report Type: 
  Country: None (occurrence: None)
  Receive Date: 20100614
  Receipt Date: 20100602
  Transmission Date: 20101027
  Serious: Yes (Death)
  Sender: FDA-Public Use
  Company Number: CO-GENENTECH-302731

PATIENT
  Sex: Male

DRUGS (3)
  1. MABTHERA [Suspect]
     Indication: NON-HODGKIN'S LYMPHOMA
     Dosage: 700 MG, Q21D
     Route: 042
     Dates: start: 20090301, end: 20100410
  2. OMEPRAZOLE [Concomitant]
     Indication: DRUG USE FOR UNKNOWN INDICATION
     Dosage: UNK
     Route: 048
  3. ACETAMINOPHEN [Concomitant]
     Indication: PAIN
     Dosage: 500 MG, PRN
     Route: 048

REACTIONS (1)
  - DISEASE PROGRESSION [None]
